FAERS Safety Report 15461146 (Version 1)
Quarter: 2018Q4

REPORT INFORMATION
  Report Type: Spontaneous
  Country: CN (occurrence: CN)
  Receive Date: 20181003
  Receipt Date: 20181003
  Transmission Date: 20190204
  Serious: Yes (Other)
  Sender: FDA-Public Use
  Company Number: CN-BRACCO-2018CN05030

PATIENT
  Age: 20 Year
  Sex: Male

DRUGS (1)
  1. MULTIHANCE [Suspect]
     Active Substance: GADOBENATE DIMEGLUMINE
     Indication: NUCLEAR MAGNETIC RESONANCE IMAGING
     Dosage: 15 ML, SINGLE
     Route: 013
     Dates: start: 20180719, end: 20180719

REACTIONS (4)
  - Anaemia [Recovering/Resolving]
  - Incorrect route of product administration [Recovering/Resolving]
  - Haemorrhage subcutaneous [Recovering/Resolving]
  - Drug hypersensitivity [Recovering/Resolving]

NARRATIVE: CASE EVENT DATE: 20180719
